FAERS Safety Report 5932681-5 (Version None)
Quarter: 2008Q4

REPORT INFORMATION
  Report Type: 
  Country: None (occurrence: None)
  Receive Date: 20081028
  Receipt Date: 20081013
  Transmission Date: 20090506
  Serious: Yes (Other)
  Sender: FDA-Public Use
  Company Number: PHHY2008DE16736

PATIENT
  Sex: Male
  Weight: 66 kg

DRUGS (5)
  1. LEPONEX [Suspect]
     Indication: SCHIZOAFFECTIVE DISORDER
     Dosage: 600 MG/DAY
     Route: 048
     Dates: end: 20080707
  2. INTERFERON [Suspect]
     Dosage: UNK
     Dates: start: 20080201, end: 20080701
  3. PEGASYS [Suspect]
     Indication: HEPATITIS C
     Dosage: 180 MCG WEEKLY
     Route: 058
     Dates: start: 20080220, end: 20080903
  4. PEGASYS [Suspect]
     Dosage: 135 MCG WEEKLY
     Route: 058
     Dates: start: 20080910, end: 20081001
  5. COPEGUS [Suspect]
     Indication: HEPATITIS C
     Dosage: 1200 MG/DAY
     Route: 048
     Dates: start: 20080220, end: 20081007

REACTIONS (4)
  - HEPATITIS C [None]
  - LEUKOPENIA [None]
  - NEUTROPENIA [None]
  - PANCYTOPENIA [None]
